FAERS Safety Report 22249493 (Version 1)
Quarter: 2023Q2

REPORT INFORMATION
  Report Type: Spontaneous
  Country: US (occurrence: None)
  Receive Date: 20230424
  Receipt Date: 20230424
  Transmission Date: 20230721
  Serious: Yes (unspecified)
  Sender: FDA-Public Use
  Company Number: None

PATIENT
  Age: 56 Year
  Sex: Male

DRUGS (8)
  1. CABENUVA [Suspect]
     Active Substance: CABOTEGRAVIR\RILPIVIRINE
     Indication: HIV infection
     Dosage: 6 ML EVERY OTHER MONTH  INTRAMUSCULAR ?
     Route: 030
     Dates: start: 20220811, end: 20230331
  2. CABENUVA [Suspect]
     Active Substance: CABOTEGRAVIR\RILPIVIRINE
     Indication: Acquired immunodeficiency syndrome
  3. ACYCLVOIR 400 MG [Concomitant]
  4. CYCLOBENZAPRINE 10 MG TABLETS [Concomitant]
  5. DICLOFENAC SOD DR 75 MG TABLETS [Concomitant]
  6. SILDENAFIL 100 MG TABLETS [Concomitant]
  7. TESTOSTERONE 1/62% GEL [Concomitant]
  8. ZOLPIDEM TARTRATE 10 MG TABLETS [Concomitant]

REACTIONS (2)
  - Therapy interrupted [None]
  - Therapy change [None]

NARRATIVE: CASE EVENT DATE: 20230330
